FAERS Safety Report 18047242 (Version 4)
Quarter: 2020Q4

REPORT INFORMATION
  Report Type: Spontaneous
  Country: LT (occurrence: LT)
  Receive Date: 20200721
  Receipt Date: 20201028
  Transmission Date: 20210113
  Serious: Yes (Death, Hospitalization, Other)
  Sender: FDA-Public Use
  Company Number: LT-JNJFOC-20200722260

PATIENT
  Age: 52 Year
  Sex: Male
  Weight: 120 kg

DRUGS (1)
  1. IMODIUM [Suspect]
     Active Substance: LOPERAMIDE HYDROCHLORIDE
     Indication: DIARRHOEA
     Route: 048
     Dates: start: 202004, end: 20200630

REACTIONS (5)
  - Death [Fatal]
  - Contraindicated product prescribed [Fatal]
  - Off label use [Fatal]
  - Product use issue [Fatal]
  - Contraindicated device used [Fatal]

NARRATIVE: CASE EVENT DATE: 202004
